FAERS Safety Report 10772051 (Version 2)
Quarter: 2015Q1

REPORT INFORMATION
  Report Type: Report from Study
  Country: AR (occurrence: AR)
  Receive Date: 20150206
  Receipt Date: 20150215
  Transmission Date: 20150721
  Serious: Yes (Hospitalization, Other)
  Sender: FDA-Public Use
  Company Number: AR-ABBVIE-15P-007-1344076-00

PATIENT
  Age: 70 Year
  Sex: Male

DRUGS (1)
  1. ZEMPLAR [Suspect]
     Active Substance: PARICALCITOL
     Indication: HYPERPARATHYROIDISM SECONDARY
     Route: 042
     Dates: start: 20140807, end: 20150115

REACTIONS (2)
  - Arteriovenous fistula [Not Recovered/Not Resolved]
  - Arteriovenous fistula site infection [Not Recovered/Not Resolved]

NARRATIVE: CASE EVENT DATE: 20150115
